FAERS Safety Report 8109747-7 (Version None)
Quarter: 2012Q1

REPORT INFORMATION
  Report Type: 
  Country: None (occurrence: None)
  Receive Date: 20120202
  Receipt Date: 20120119
  Transmission Date: 20120608
  Serious: Yes (Hospitalization)
  Sender: FDA-Public Use
  Company Number: US-AMGEN-USASP2011069727

PATIENT
  Age: 61 Year
  Sex: Female

DRUGS (10)
  1. ENBREL [Suspect]
     Indication: PSORIASIS
     Dosage: 50 MG, QWK
     Route: 058
     Dates: start: 20120106
  2. NEXIUM [Concomitant]
     Dosage: UNK
  3. PREMARIN [Concomitant]
     Dosage: UNK
  4. ENBREL [Suspect]
     Dosage: 50 MG, QWK
     Route: 058
     Dates: start: 20091101, end: 20111018
  5. SIMVASTATIN [Concomitant]
     Dosage: UNK
  6. LANTUS [Concomitant]
     Dosage: UNK
  7. HYDROCHLOROTHIAZIDE [Concomitant]
     Dosage: UNK
  8. LISINOPRIL [Concomitant]
     Dosage: UNK
  9. INSULIN [Concomitant]
     Dosage: UNK
  10. AMLODIPINE [Concomitant]
     Dosage: UNK

REACTIONS (1)
  - CELLULITIS [None]
